FAERS Safety Report 6412029-2 (Version None)
Quarter: 2009Q4

REPORT INFORMATION
  Report Type: 
  Country: None (occurrence: None)
  Receive Date: 20091023
  Receipt Date: 20091019
  Transmission Date: 20100525
  Serious: Yes (Hospitalization)
  Sender: FDA-Public Use
  Company Number: JP-PFIZER INC-2009286431

PATIENT
  Age: 65 Year

DRUGS (1)
  1. XALATAN [Suspect]
     Route: 047

REACTIONS (2)
  - BLEPHARAL PIGMENTATION [None]
  - EYE OPERATION [None]
